FAERS Safety Report 20504765 (Version 3)
Quarter: 2022Q4

REPORT INFORMATION
  Report Type: Report from Study
  Country: US (occurrence: US)
  Receive Date: 20220223
  Receipt Date: 20221101
  Transmission Date: 20230112
  Serious: No
  Sender: FDA-Public Use
  Company Number: US-SA-SAC20220218000458

PATIENT
  Age: 48 Year
  Sex: Female

DRUGS (2)
  1. DUPILUMAB [Suspect]
     Active Substance: DUPILUMAB
     Indication: Dermatitis atopic
     Dosage: 600 MG, 1X
     Route: 058
     Dates: start: 20211120, end: 20211120
  2. DUPILUMAB [Suspect]
     Active Substance: DUPILUMAB
     Dosage: 300 MG, QOW
     Route: 058
     Dates: start: 20211203, end: 20221008

REACTIONS (6)
  - Fatigue [Recovered/Resolved]
  - Headache [Recovered/Resolved]
  - Ocular hyperaemia [Unknown]
  - Lacrimation increased [Unknown]
  - Eye pain [Unknown]
  - Dry eye [Unknown]

NARRATIVE: CASE EVENT DATE: 20211204
